FAERS Safety Report 4984050-2 (Version None)
Quarter: 2006Q1

REPORT INFORMATION
  Report Type: 
  Country: None (occurrence: None)
  Receive Date: 20060302
  Receipt Date: 20051214
  Transmission Date: 20060701
  Serious: Yes (Hospitalization)
  Sender: FDA-Public Use
  Company Number: S05-USA-05213-01

PATIENT
  Age: 33 Year
  Sex: Female

DRUGS (6)
  1. CAMPRAL [Suspect]
     Indication: ALCOHOLISM
     Dosage: 666 MG TID PO
     Route: 048
     Dates: start: 20051001
  2. LEXAPRO [Concomitant]
  3. BUSPAR [Concomitant]
  4. PRILOSEC [Concomitant]
  5. DILTIAZEM [Concomitant]
  6. LIDODERM [Concomitant]

REACTIONS (1)
  - MYOCARDIAL INFARCTION [None]
